FAERS Safety Report 7296609-0 (Version None)
Quarter: 2011Q1

REPORT INFORMATION
  Report Type: 
  Country: None (occurrence: None)
  Receive Date: 20110216
  Receipt Date: 20110208
  Transmission Date: 20110831
  Serious: Yes (Hospitalization, Other)
  Sender: FDA-Public Use
  Company Number: PHHY2011US05014

PATIENT
  Sex: Female

DRUGS (1)
  1. TOBI [Suspect]
     Indication: CYSTIC FIBROSIS
     Dosage: 300 MG, BID

REACTIONS (4)
  - RESPIRATORY DISORDER [None]
  - PYREXIA [None]
  - INFECTIVE PULMONARY EXACERBATION OF CYSTIC FIBROSIS [None]
  - INFLUENZA [None]
